FAERS Safety Report 12382813 (Version 1)
Quarter: 2016Q2

REPORT INFORMATION
  Report Type: Spontaneous
  Country: TR (occurrence: TR)
  Receive Date: 20160518
  Receipt Date: 20160518
  Transmission Date: 20160815
  Serious: Yes (Death, Other)
  Sender: FDA-Public Use
  Company Number: TR-DEPOMED, INC.-TR-2016DEP009586

PATIENT

DRUGS (5)
  1. FENTANYL. [Suspect]
     Active Substance: FENTANYL
     Indication: ANALGESIC THERAPY
     Dosage: 25 MCG/HOUR, PATCH
     Route: 062
  2. SEVOFLURANE. [Suspect]
     Active Substance: SEVOFLURANE
     Indication: ANAESTHESIA
  3. PROPOFOL. [Concomitant]
     Active Substance: PROPOFOL
     Indication: ANAESTHESIA
  4. TRAMADOL. [Suspect]
     Active Substance: TRAMADOL
     Indication: ANALGESIC THERAPY
     Dosage: 100 MG, UNK
     Route: 030
  5. PARACETAMOL [Concomitant]
     Active Substance: ACETAMINOPHEN
     Indication: ANALGESIC THERAPY
     Route: 051

REACTIONS (7)
  - Areflexia [Not Recovered/Not Resolved]
  - Brain death [Fatal]
  - Intracranial pressure increased [Not Recovered/Not Resolved]
  - Somnolence [None]
  - Condition aggravated [Fatal]
  - Confusional state [None]
  - Diabetes insipidus [Not Recovered/Not Resolved]
